FAERS Safety Report 23668771 (Version 1)
Quarter: 2024Q1

REPORT INFORMATION
  Report Type: Spontaneous
  Country: JP (occurrence: JP)
  Receive Date: 20240325
  Receipt Date: 20240325
  Transmission Date: 20240410
  Serious: Yes (Other)
  Sender: FDA-Public Use
  Company Number: JP-SANOFI-2020SA318599

PATIENT
  Age: 5 Year
  Sex: Male

DRUGS (28)
  1. SABRIL [Suspect]
     Active Substance: VIGABATRIN
     Indication: Infantile spasms
     Dosage: 750 MG, BID
     Route: 048
     Dates: start: 20201107, end: 20201111
  2. SABRIL [Suspect]
     Active Substance: VIGABATRIN
     Dosage: 480 MG, BID
     Route: 048
     Dates: start: 20201104, end: 20201106
  3. SABRIL [Suspect]
     Active Substance: VIGABATRIN
     Dosage: 500 MG, BID
     Route: 048
     Dates: start: 20201112, end: 20201120
  4. SABRIL [Suspect]
     Active Substance: VIGABATRIN
     Dosage: 585 MG, BID
     Route: 048
     Dates: start: 20230512, end: 20230615
  5. SABRIL [Suspect]
     Active Substance: VIGABATRIN
     Dosage: 1170 MG, BID
     Route: 048
     Dates: start: 20230616, end: 20230723
  6. SABRIL [Suspect]
     Active Substance: VIGABATRIN
     Dosage: 1500 MG, BID
     Route: 048
     Dates: start: 20230724, end: 20230821
  7. SABRIL [Suspect]
     Active Substance: VIGABATRIN
     Dosage: 1000 MG, BID
     Route: 048
     Dates: start: 20230822, end: 20230924
  8. SABRIL [Suspect]
     Active Substance: VIGABATRIN
     Dosage: 500 MG, BID
     Route: 048
     Dates: start: 20230925, end: 20231012
  9. CLONAZEPAM [Concomitant]
     Active Substance: CLONAZEPAM
     Indication: Infantile spasms
     Dosage: DAILY DOSE: 2.8 MG
     Route: 048
     Dates: start: 201601
  10. LEVETIRACETAM [Concomitant]
     Active Substance: LEVETIRACETAM
     Indication: Infantile spasms
     Dosage: DAILY DOSE: 800 MG
     Route: 048
     Dates: start: 201601
  11. VALPROATE SODIUM [Concomitant]
     Active Substance: VALPROATE SODIUM
     Indication: Infantile spasms
     Dosage: DAILY DOSE: 1000 MG
     Route: 048
     Dates: start: 201601
  12. TEGRETOL [Concomitant]
     Active Substance: CARBAMAZEPINE
     Indication: Infantile spasms
     Dosage: DAILY DOSE: 300 MG
     Route: 048
     Dates: start: 201712
  13. CARTINE L [Concomitant]
     Indication: Prophylaxis
     Dosage: DAILY DOSE: 300 MG
     Route: 048
  14. CARTINE L [Concomitant]
     Indication: Investigation
  15. INDERAL [Concomitant]
     Active Substance: PROPRANOLOL HYDROCHLORIDE
     Indication: Product used for unknown indication
     Dosage: DAILY DOSE: 5 MG
     Route: 048
  16. LACTULOSE [Concomitant]
     Active Substance: LACTULOSE
     Indication: Prophylaxis
     Dosage: 10 ML/DOSE, AS NEEDED FOR CONSTIPATION
     Route: 048
  17. LACTULOSE [Concomitant]
     Active Substance: LACTULOSE
     Indication: Investigation
     Route: 048
  18. LACTULOSE [Concomitant]
     Active Substance: LACTULOSE
     Indication: Constipation
     Route: 048
  19. SIROLIMUS [Concomitant]
     Active Substance: SIROLIMUS
     Indication: Prophylaxis
     Dosage: APPLIED TO FACE, TWICE DAILY
     Route: 061
  20. SIROLIMUS [Concomitant]
     Active Substance: SIROLIMUS
     Indication: Investigation
     Route: 061
  21. CARBOCYSTEINE [Concomitant]
     Active Substance: CARBOCYSTEINE
     Indication: Prophylaxis
     Dosage: DAILY DOSE: 600 MG
     Route: 048
     Dates: end: 20201204
  22. CARBOCYSTEINE [Concomitant]
     Active Substance: CARBOCYSTEINE
     Indication: Investigation
     Route: 048
  23. TRICLOFOS SODIUM [Concomitant]
     Active Substance: TRICLOFOS SODIUM
     Indication: Prophylaxis
     Dosage: DAILY DOSE: 130 MG
     Route: 048
     Dates: start: 20201107, end: 20201107
  24. TRICLOFOS SODIUM [Concomitant]
     Active Substance: TRICLOFOS SODIUM
     Indication: Investigation
     Dosage: DAILY DOSE: 130 MG
     Route: 048
     Dates: start: 20201110, end: 20201110
  25. MUCOSAL [ACETYLCYSTEINE] [Concomitant]
     Indication: Prophylaxis
     Dosage: DAILY DOSE: 18 MG
     Route: 048
     Dates: start: 20201027, end: 20201028
  26. MUCOSAL [ACETYLCYSTEINE] [Concomitant]
     Indication: Investigation
     Route: 048
  27. TOPIRAMATE [Concomitant]
     Active Substance: TOPIRAMATE
     Indication: Infantile spasms
     Dosage: UNK
     Route: 048
     Dates: start: 201807
  28. RUFINAMIDE [Concomitant]
     Active Substance: RUFINAMIDE
     Indication: Product used for unknown indication
     Dosage: UNK
     Route: 048
     Dates: start: 202101

REACTIONS (3)
  - Epilepsy [Recovering/Resolving]
  - Dizziness [Recovering/Resolving]
  - Drug ineffective [Unknown]

NARRATIVE: CASE EVENT DATE: 20201101
